FAERS Safety Report 5016288-2 (Version None)
Quarter: 2006Q2

REPORT INFORMATION
  Report Type: 
  Country: None (occurrence: None)
  Receive Date: 20060414
  Receipt Date: 20060223
  Transmission Date: 20061013
  Serious: No
  Sender: FDA-Public Use
  Company Number: 2006SP000916

PATIENT
  Age: 73 Year
  Sex: Male

DRUGS (4)
  1. LUNESTA [Suspect]
     Indication: INSOMNIA
     Dosage: 3 MG; PRN; ORAL; SEE IMAGE
     Route: 048
     Dates: start: 20060109
  2. LEVOTHYROXINE SODIUM [Concomitant]
  3. LOTREL [Concomitant]
  4. ATENOLOL [Concomitant]

REACTIONS (1)
  - DYSGEUSIA [None]
